FAERS Safety Report 12831257 (Version 2)
Quarter: 2016Q4

REPORT INFORMATION
  Report Type: Report from Study
  Country: US (occurrence: US)
  Receive Date: 20161008
  Receipt Date: 20161008
  Transmission Date: 20170207
  Serious: Yes (Other)
  Sender: FDA-Public Use
  Company Number: US-AMGEN-USASL2016134779

PATIENT
  Age: 61 Year
  Sex: Female

DRUGS (1)
  1. ENBREL [Suspect]
     Active Substance: ETANERCEPT
     Indication: RHEUMATOID ARTHRITIS
     Dosage: 50 MG, QWK
     Route: 065
     Dates: start: 2014

REACTIONS (7)
  - Injection site extravasation [Unknown]
  - Injection site mass [Unknown]
  - Injection site bruising [Unknown]
  - Cyst [Unknown]
  - Injection site pain [Unknown]
  - Alopecia [Unknown]
  - Underdose [Unknown]

NARRATIVE: CASE EVENT DATE: 201609
